FAERS Safety Report 19285828 (Version 1)
Quarter: 2021Q2

REPORT INFORMATION
  Report Type: Spontaneous
  Country: RU (occurrence: RU)
  Receive Date: 20210521
  Receipt Date: 20210521
  Transmission Date: 20210717
  Serious: Yes (Hospitalization)
  Sender: FDA-Public Use
  Company Number: NVSC2021RU111967

PATIENT
  Age: 27 Year
  Sex: Female
  Weight: 46 kg

DRUGS (3)
  1. TRILEPTAL [Suspect]
     Active Substance: OXCARBAZEPINE
     Indication: SUICIDE ATTEMPT
     Dosage: UNK, 30 TABLETS
     Route: 048
     Dates: start: 20210430, end: 20210430
  2. AFOBAZOL [Concomitant]
     Indication: SUICIDE ATTEMPT
     Dosage: UNK, 30 TABLETS
     Route: 048
     Dates: start: 20210430, end: 20210430
  3. FLUVOXAMINE [Concomitant]
     Active Substance: FLUVOXAMINE
     Indication: SUICIDE ATTEMPT
     Dosage: UNK, 15 TABLETS
     Route: 048
     Dates: start: 20210430, end: 20210430

REACTIONS (3)
  - Dizziness [Recovered/Resolved]
  - Asthenia [Recovered/Resolved]
  - Nausea [Recovered/Resolved]

NARRATIVE: CASE EVENT DATE: 20210430
